FAERS Safety Report 9386129 (Version 1)
Quarter: 2013Q3

REPORT INFORMATION
  Report Type: Spontaneous
  Country: US (occurrence: US)
  Receive Date: 20130707
  Receipt Date: 20130707
  Transmission Date: 20140515
  Serious: No
  Sender: FDA-Public Use
  Company Number: US-ALLERGAN-1304810US

PATIENT
  Age: 78 Year
  Sex: Female

DRUGS (7)
  1. LUMIGAN? 0.01% [Suspect]
     Indication: BORDERLINE GLAUCOMA
     Dosage: 2 GTT, UNK
     Route: 047
     Dates: start: 201303
  2. LISINOPRIL [Concomitant]
     Indication: PRODUCT USED FOR UNKNOWN INDICATION
  3. DIURETIC NOS [Concomitant]
     Indication: PRODUCT USED FOR UNKNOWN INDICATION
  4. ATENOLOL [Concomitant]
     Indication: PRODUCT USED FOR UNKNOWN INDICATION
  5. SIMVASTATIN [Concomitant]
     Indication: PRODUCT USED FOR UNKNOWN INDICATION
  6. FLUOXETINE [Concomitant]
     Indication: PRODUCT USED FOR UNKNOWN INDICATION
  7. TEMAZEPAM [Concomitant]
     Indication: SLEEP DISORDER

REACTIONS (7)
  - Wheezing [Unknown]
  - Eyelid sensory disorder [Unknown]
  - Eyelid ptosis [Unknown]
  - Ocular icterus [Unknown]
  - Off label use [Unknown]
  - Erythema of eyelid [Unknown]
  - Eyelids pruritus [Unknown]
